FAERS Safety Report 20965329 (Version 2)
Quarter: 2022Q2

REPORT INFORMATION
  Report Type: Spontaneous
  Country: ES (occurrence: ES)
  Receive Date: 20220616
  Receipt Date: 20220620
  Transmission Date: 20220721
  Serious: Yes (Hospitalization, Other)
  Sender: FDA-Public Use
  Company Number: ES-GRUNENTHAL-2022-104633

PATIENT
  Age: 13 Year
  Sex: Female

DRUGS (3)
  1. TRAMADOL HYDROCHLORIDE [Interacting]
     Active Substance: TRAMADOL HYDROCHLORIDE
     Indication: Product used for unknown indication
     Dosage: UNK
     Route: 065
  2. DULOXETINE [Suspect]
     Active Substance: DULOXETINE
     Indication: Product used for unknown indication
     Dosage: 600 MILLIGRAM
     Route: 065
  3. MORPHINE [Suspect]
     Active Substance: MORPHINE
     Indication: Product used for unknown indication
     Dosage: 300 MILLIGRAM
     Route: 065

REACTIONS (19)
  - Hyperamylasaemia [Unknown]
  - Intentional overdose [Unknown]
  - Respiratory depression [Unknown]
  - Loss of consciousness [Unknown]
  - Leukocytosis [Unknown]
  - Abdominal pain [Unknown]
  - Vomiting [Unknown]
  - Headache [Unknown]
  - Somnolence [Unknown]
  - Urinary retention [Recovered/Resolved]
  - Suicidal ideation [Unknown]
  - Bradyphrenia [Unknown]
  - Miosis [Unknown]
  - Abdominal discomfort [Unknown]
  - Blood creatine phosphokinase increased [Unknown]
  - Troponin I increased [Unknown]
  - Serotonin syndrome [Unknown]
  - Drug interaction [Unknown]
  - Toxicity to various agents [Unknown]
